FAERS Safety Report 12975698 (Version 1)
Quarter: 2016Q4

REPORT INFORMATION
  Report Type: Report from Study
  Country: None (occurrence: NL)
  Receive Date: 20161125
  Receipt Date: 20161125
  Transmission Date: 20170207
  Serious: Yes (Death)
  Sender: FDA-Public Use
  Company Number: NL-ABBVIE-16P-114-1792116-00

PATIENT
  Age: 31 Year
  Sex: Female
  Weight: 86 kg

DRUGS (3)
  1. LUCRIN DEPOT [Suspect]
     Active Substance: LEUPROLIDE ACETATE
     Indication: BREAST CANCER
     Route: 065
     Dates: start: 20150507, end: 20151022
  2. LUCRIN DEPOT [Suspect]
     Active Substance: LEUPROLIDE ACETATE
     Indication: BREAST CANCER
     Route: 065
     Dates: start: 20160610, end: 20160610
  3. LUCRIN DEPOT [Suspect]
     Active Substance: LEUPROLIDE ACETATE
     Route: 065
     Dates: start: 20130225, end: 20141028

REACTIONS (1)
  - Death [Fatal]

NARRATIVE: CASE EVENT DATE: 20160902
